FAERS Safety Report 4666346-7 (Version None)
Quarter: 2005Q2

REPORT INFORMATION
  Report Type: 
  Country: None (occurrence: None)
  Receive Date: 20050518
  Receipt Date: 20050411
  Transmission Date: 20051028
  Serious: Yes (Other)
  Sender: FDA-Public Use
  Company Number: HQWYE017814APR05

PATIENT
  Age: 57 Year
  Sex: Male
  Weight: 61.29 kg

DRUGS (2)
  1. PRIMATENE MIST [Suspect]
     Indication: DYSPNOEA
     Dosage: INHALATION EVERY 15  TO 20 MINUTES, INHALATION
     Route: 055
  2. PRIMATENE MIST [Suspect]
     Indication: EMPHYSEMA
     Dosage: INHALATION EVERY 15  TO 20 MINUTES, INHALATION
     Route: 055

REACTIONS (3)
  - DRUG ABUSER [None]
  - DRUG DEPENDENCE [None]
  - OVERDOSE [None]
